FAERS Safety Report 18455306 (Version 3)
Quarter: 2020Q4

REPORT INFORMATION
  Report Type: Spontaneous
  Country: JP (occurrence: JP)
  Receive Date: 20201102
  Receipt Date: 20201222
  Transmission Date: 20210114
  Serious: Yes (Hospitalization, Other)
  Sender: FDA-Public Use
  Company Number: JP-ALLERGAN-2042172US

PATIENT
  Sex: Female

DRUGS (3)
  1. LINACLOTIDE - BP [Suspect]
     Active Substance: LINACLOTIDE
     Dosage: 0.25 MG, QD, BEFORE BREAKFAST
     Route: 048
     Dates: start: 20191126
  2. LINACLOTIDE - BP [Suspect]
     Active Substance: LINACLOTIDE
     Indication: CONSTIPATION
     Dosage: 0.25 MG, QOD, MON, WED AND FRI), BEFORE DAY SERVICE VISIT
     Route: 048
     Dates: start: 20200225, end: 20200830
  3. CELECOX [Suspect]
     Active Substance: CELECOXIB
     Indication: ANALGESIC THERAPY
     Dosage: 200 MG, QD
     Route: 048
     Dates: start: 20200827, end: 20200907

REACTIONS (4)
  - Off label use [Unknown]
  - Prescribed underdose [Unknown]
  - Cholecystitis [Recovered/Resolved]
  - Product use issue [Unknown]

NARRATIVE: CASE EVENT DATE: 20191126
